FAERS Safety Report 18385051 (Version 1)
Quarter: 2020Q4

REPORT INFORMATION
  Report Type: Spontaneous
  Country: US (occurrence: US)
  Receive Date: 20201014
  Receipt Date: 20201014
  Transmission Date: 20210114
  Serious: Yes (Other)
  Sender: FDA-Public Use
  Company Number: US-ROCHE-2690434

PATIENT

DRUGS (1)
  1. OCREVUS [Suspect]
     Active Substance: OCRELIZUMAB
     Indication: RELAPSING MULTIPLE SCLEROSIS
     Route: 065

REACTIONS (5)
  - Muscle disorder [Unknown]
  - Multiple sclerosis [Unknown]
  - Feeling abnormal [Unknown]
  - Injury [Unknown]
  - Intervertebral disc protrusion [Unknown]
